FAERS Safety Report 15632063 (Version 1)
Quarter: 2018Q4

REPORT INFORMATION
  Report Type: Spontaneous
  Country: US (occurrence: US)
  Receive Date: 20181119
  Receipt Date: 20181119
  Transmission Date: 20190205
  Serious: No
  Sender: FDA-Public Use
  Company Number: US-BAUSCH-BL-2018-031268

PATIENT
  Age: 100 Year
  Sex: Male
  Weight: 77.18 kg

DRUGS (1)
  1. TIMOPTIC-XE [Suspect]
     Active Substance: TIMOLOL MALEATE
     Indication: PRODUCT USED FOR UNKNOWN INDICATION
     Route: 047
     Dates: start: 1985

REACTIONS (1)
  - Blood sodium decreased [Not Recovered/Not Resolved]
